FAERS Safety Report 7659338-7 (Version None)
Quarter: 2011Q3

REPORT INFORMATION
  Report Type: 
  Country: None (occurrence: None)
  Receive Date: 20110805
  Receipt Date: 20110801
  Transmission Date: 20111222
  Serious: Yes (Death, Other)
  Sender: FDA-Public Use
  Company Number: TW-ROCHE-793390

PATIENT

DRUGS (5)
  1. MYCOPHENOLATE MOFETIL [Suspect]
     Route: 065
  2. GANCICLOVIR SODIUM [Suspect]
     Route: 042
  3. TACROLIMUS [Suspect]
     Route: 065
  4. PREDNISOLONE [Suspect]
     Route: 065
  5. VALGANCICLOVIR [Suspect]
     Route: 048

REACTIONS (9)
  - NEPHROPATHY TOXIC [None]
  - MENINGITIS BACTERIAL [None]
  - SEPSIS [None]
  - PNEUMONIA BACTERIAL [None]
  - BILIARY SEPSIS [None]
  - CLOSTRIDIAL INFECTION [None]
  - CYTOMEGALOVIRUS INFECTION [None]
  - LEUKOPENIA [None]
  - BONE MARROW TOXICITY [None]
